FAERS Safety Report 10912938 (Version 2)
Quarter: 2015Q1

REPORT INFORMATION
  Report Type: Spontaneous
  Country: BE (occurrence: BE)
  Receive Date: 20150313
  Receipt Date: 20150316
  Transmission Date: 20150721
  Serious: Yes (Disabling)
  Sender: FDA-Public Use
  Company Number: BE-PFIZER INC-2015086288

PATIENT
  Age: 48 Year
  Sex: Female

DRUGS (12)
  1. ZOELY [Concomitant]
     Active Substance: ESTRADIOL\NOMEGESTROL ACETATE
  2. LYRICA [Suspect]
     Active Substance: PREGABALIN
     Indication: PAIN
     Dosage: 50 TO 150 MG, 3X/DAY
     Route: 048
     Dates: start: 2008
  3. LUTENYL [Concomitant]
     Active Substance: NOMEGESTROL ACETATE
  4. IMPLANON [Concomitant]
     Active Substance: ETONOGESTREL
  5. ORTHO EVRA [Concomitant]
     Active Substance: ETHINYL ESTRADIOL\NORELGESTROMIN
  6. QLAIRA [Concomitant]
     Active Substance: DIENOGEST\ESTRADIOL VALERATE
  7. PRIMOLUT [Concomitant]
  8. MICROGYNON [Concomitant]
     Active Substance: ETHINYL ESTRADIOL\LEVONORGESTREL ACETATE
  9. NUVARING [Concomitant]
     Active Substance: ETHINYL ESTRADIOL\ETONOGESTREL
  10. VISANETTE [Concomitant]
  11. YASMINELLE [Concomitant]
     Active Substance: DROSPIRENONE
  12. CERAZETTE [Concomitant]
     Active Substance: DESOGESTREL

REACTIONS (1)
  - Drug interaction [Not Recovered/Not Resolved]

NARRATIVE: CASE EVENT DATE: 200809
